FAERS Safety Report 26099343 (Version 1)
Quarter: 2025Q4

REPORT INFORMATION
  Report Type: Spontaneous
  Country: EU (occurrence: US)
  Receive Date: 20251128
  Receipt Date: 20251128
  Transmission Date: 20260118
  Serious: Yes (Other)
  Sender: AUROBINDO
  Company Number: EU-AUROBINDO-AUR-APL-2024-014841

PATIENT
  Age: 78 Year
  Sex: Female
  Weight: 78 kg

DRUGS (14)
  1. ANASTROZOLE [Suspect]
     Active Substance: ANASTROZOLE
     Indication: Breast cancer
     Dosage: 1 DOSAGE FORM, DAILY (1X/D)
  2. ANASTROZOLE [Suspect]
     Active Substance: ANASTROZOLE
     Dosage: 1 DOSAGE FORM, DAILY (1X/D)
  3. CANDESARTAN [Concomitant]
     Active Substance: CANDESARTAN
     Indication: Product used for unknown indication
     Dosage: 2 DOSAGE FORM, DAILY
  4. ASPIRIN [Concomitant]
     Active Substance: ASPIRIN
     Indication: Product used for unknown indication
     Dosage: UNK
  5. ESOMEPRAZOLE MAGNESIUM [Concomitant]
     Active Substance: ESOMEPRAZOLE MAGNESIUM
     Indication: Product used for unknown indication
     Dosage: UNK
  6. EBASTINE [Concomitant]
     Active Substance: EBASTINE
     Indication: Product used for unknown indication
     Dosage: UNK, EVERY 2 DAYS
  7. MAGNESIUM [Concomitant]
     Active Substance: MAGNESIUM
     Indication: Product used for unknown indication
     Dosage: UNK
  8. FOLIC ACID [Concomitant]
     Active Substance: FOLIC ACID
     Indication: Product used for unknown indication
     Dosage: UNK
  9. CALCIUM [Concomitant]
     Active Substance: CALCIUM
     Indication: Osteoporosis
     Dosage: UNK
  10. VITAMIN B12 [Concomitant]
     Active Substance: CYANOCOBALAMIN
     Indication: Product used for unknown indication
     Dosage: UNK
  11. VITAMIN D [Concomitant]
     Active Substance: VITAMIN D NOS
     Indication: Osteoporosis
     Dosage: UNK
  12. Augenvital [Concomitant]
     Indication: Constipation
     Dosage: UNK
  13. Artelac Complete [Concomitant]
     Indication: Product used for unknown indication
     Dosage: UNK
  14. Pollival nasal spray [Concomitant]
     Indication: Product used for unknown indication
     Dosage: UNK

REACTIONS (8)
  - Retinal vein occlusion [Not Recovered/Not Resolved]
  - Unevaluable event [Not Recovered/Not Resolved]
  - Ophthalmic migraine [Recovered/Resolved]
  - Visual impairment [Recovered/Resolved]
  - Vision blurred [Recovered/Resolved]
  - Prosopagnosia [Recovered/Resolved]
  - Constipation [Recovered/Resolved]
  - Dry eye [Not Recovered/Not Resolved]

NARRATIVE: CASE EVENT DATE: 20240312
